FAERS Safety Report 8943654 (Version 2)
Quarter: 2012Q4

REPORT INFORMATION
  Report Type: 
  Country: JP (occurrence: JP)
  Receive Date: 20121204
  Receipt Date: 20121214
  Transmission Date: 20130627
  Serious: Yes (Hospitalization, Other)
  Sender: FDA-Public Use
  Company Number: JP-009507513-1206USA00724

PATIENT
  Age: 79 Year
  Sex: Male
  Weight: 68 kg

DRUGS (5)
  1. JANUVIA [Suspect]
     Indication: HYPERGLYCAEMIA
     Dosage: 50 mg, qd
     Route: 048
     Dates: start: 20100201
  2. BASEN [Suspect]
     Indication: HYPERGLYCAEMIA
     Dosage: 0.3 mg, tid
     Route: 048
     Dates: start: 20100309
  3. AMARYL [Concomitant]
     Indication: HYPERGLYCAEMIA
     Dosage: 3 mg, bid
     Route: 048
     Dates: start: 201001
  4. BUFFERIN [Concomitant]
     Indication: CEREBROVASCULAR ACCIDENT PROPHYLAXIS
     Dosage: 81 mg, qd
     Route: 048
     Dates: start: 199707
  5. MICARDIS [Concomitant]
     Indication: HYPERTENSION
     Dosage: 20 mg, qd
     Route: 048

REACTIONS (3)
  - Thyroiditis [Recovered/Resolved]
  - Hyperthyroidism [Recovered/Resolved]
  - Cerebral infarction [Unknown]
